FAERS Safety Report 23985822 (Version 2)
Quarter: 2024Q2

REPORT INFORMATION
  Report Type: Spontaneous
  Country: US (occurrence: US)
  Receive Date: 20240618
  Receipt Date: 20240620
  Transmission Date: 20240715
  Serious: No
  Sender: FDA-Public Use
  Company Number: US-PFIZER INC-PV202400079069

PATIENT
  Age: 89 Year
  Sex: Male

DRUGS (1)
  1. VYNDAMAX [Suspect]
     Active Substance: TAFAMIDIS
     Dosage: ONE 61 MG TAFAMIDIS CAPSULE ORALLY ONCE DAILY/TAKE 1 CAPSULE (61 MG TOTAL) BY MOUTH DAILY,ORAL
     Route: 048
     Dates: start: 20240520

REACTIONS (1)
  - Product dose omission issue [Unknown]

NARRATIVE: CASE EVENT DATE: 20240101
